FAERS Safety Report 19826289 (Version 2)
Quarter: 2021Q4

REPORT INFORMATION
  Report Type: Spontaneous
  Country: JP (occurrence: JP)
  Receive Date: 20210914
  Receipt Date: 20211026
  Transmission Date: 20220303
  Serious: Yes (Other)
  Sender: FDA-Public Use
  Company Number: JP-LUPIN PHARMACEUTICALS INC.-2021-17846

PATIENT

DRUGS (3)
  1. BETAMETHASONE [Suspect]
     Active Substance: BETAMETHASONE
     Indication: Maternal therapy to enhance foetal lung maturity
     Dosage: UNK
     Route: 064
  2. PREDNISOLONE [Suspect]
     Active Substance: PREDNISOLONE
     Indication: Glomerulonephritis membranoproliferative
     Dosage: UNK
     Route: 064
  3. ICOSAPENT ETHYL [Suspect]
     Active Substance: ICOSAPENT ETHYL
     Indication: Hypertriglyceridaemia
     Dosage: UNK
     Route: 064

REACTIONS (2)
  - Premature baby [Unknown]
  - Foetal exposure during pregnancy [Unknown]
